FAERS Safety Report 25690510 (Version 1)
Quarter: 2025Q3

REPORT INFORMATION
  Report Type: Spontaneous
  Country: GB (occurrence: GB)
  Receive Date: 20250818
  Receipt Date: 20250818
  Transmission Date: 20251021
  Serious: Yes (Hospitalization, Other)
  Sender: FERRING
  Company Number: None

PATIENT

DRUGS (1)
  1. DESMOPRESSIN [Suspect]
     Active Substance: DESMOPRESSIN
     Indication: Enuresis
     Dosage: 120 MG, DAILY, BEFORE BED
     Route: 065
     Dates: start: 20250807, end: 20250809

REACTIONS (4)
  - Kidney infection [Recovering/Resolving]
  - Renal impairment [Recovering/Resolving]
  - Hyponatraemic syndrome [Recovering/Resolving]
  - Diarrhoea [Recovering/Resolving]

NARRATIVE: CASE EVENT DATE: 20250809
